FAERS Safety Report 19140968 (Version 2)
Quarter: 2021Q2

REPORT INFORMATION
  Report Type: Spontaneous
  Country: US (occurrence: US)
  Receive Date: 20210415
  Receipt Date: 20210420
  Transmission Date: 20210717
  Serious: Yes (Disabling, Other)
  Sender: FDA-Public Use
  Company Number: US-PURDUE-USA-2020-0230256

PATIENT
  Sex: Male

DRUGS (3)
  1. OXYCONTIN [Suspect]
     Active Substance: OXYCODONE HYDROCHLORIDE
     Indication: STAPHYLOCOCCAL INFECTION
  2. OXYCONTIN [Suspect]
     Active Substance: OXYCODONE HYDROCHLORIDE
     Indication: PAIN
     Dosage: 300 MG, UNK
     Route: 048
  3. HYDROCODONE BITARTRATE AND ACETAMINOPHEN [Suspect]
     Active Substance: ACETAMINOPHEN\HYDROCODONE BITARTRATE
     Indication: PAIN
     Dosage: UNKNOWN
     Route: 048

REACTIONS (15)
  - Overdose [Unknown]
  - Confusional state [Unknown]
  - Pyrexia [Unknown]
  - Vomiting [Unknown]
  - Near death experience [Unknown]
  - Drug dependence [Unknown]
  - Depression [Unknown]
  - Drug withdrawal syndrome [Unknown]
  - Road traffic accident [Unknown]
  - Loss of consciousness [Recovered/Resolved]
  - Illness [Unknown]
  - Pain [Unknown]
  - Head injury [Unknown]
  - Chills [Unknown]
  - Emotional distress [Unknown]

NARRATIVE: CASE EVENT DATE: 201808
